FAERS Safety Report 13151330 (Version 1)
Quarter: 2017Q1

REPORT INFORMATION
  Report Type: Spontaneous
  Country: US (occurrence: US)
  Receive Date: 20170125
  Receipt Date: 20170125
  Transmission Date: 20170428
  Serious: No
  Sender: FDA-Public Use
  Company Number: US-KADMON PHARMACEUTICALS, LLC-KAD201601-000139

PATIENT
  Sex: Male
  Weight: 148.32 kg

DRUGS (7)
  1. RIBASPHERE [Suspect]
     Active Substance: RIBAVIRIN
     Dates: start: 20160111
  2. TRAMADOL 50 MG [Concomitant]
     Active Substance: TRAMADOL
     Indication: PAIN
  3. RIBASPHERE [Suspect]
     Active Substance: RIBAVIRIN
     Indication: HEPATITIS C
     Dosage: LIGHT BLUE OVAL TABLET
     Route: 048
     Dates: end: 20160111
  4. MULTIVITAMINS [Concomitant]
     Active Substance: VITAMINS
     Indication: SUPPLEMENTATION THERAPY
  5. SOVALDI [Concomitant]
     Active Substance: SOFOSBUVIR
     Indication: HEPATITIS C
  6. WARFARIN [Concomitant]
     Active Substance: WARFARIN
     Indication: DEEP VEIN THROMBOSIS
  7. FISH OLI [Concomitant]
     Indication: SUPPLEMENTATION THERAPY

REACTIONS (1)
  - Incorrect dose administered [Unknown]
